FAERS Safety Report 9643191 (Version 1)
Quarter: 2013Q4

REPORT INFORMATION
  Report Type: Spontaneous
  Country: US (occurrence: US)
  Receive Date: 20131024
  Receipt Date: 20131024
  Transmission Date: 20140711
  Serious: No
  Sender: FDA-Public Use
  Company Number: US-GLAXOSMITHKLINE-A1010943A

PATIENT
  Age: 62 Year
  Sex: Male

DRUGS (2)
  1. BENZOYL PEROXIDE + CLINDAMYCIN PHOSPHATE [Suspect]
     Indication: ACNE
     Dosage: 1APP PER DAY
     Route: 061
     Dates: start: 20130101
  2. NO CONCURRENT MEDICATION [Concomitant]

REACTIONS (3)
  - Erythema [Unknown]
  - Urticaria [Unknown]
  - Pruritus [Unknown]
